FAERS Safety Report 4596566-1 (Version None)
Quarter: 2005Q1

REPORT INFORMATION
  Report Type: 
  Country: None (occurrence: None)
  Receive Date: 20050228
  Receipt Date: 20050211
  Transmission Date: 20050727
  Serious: Yes (Hospitalization)
  Sender: FDA-Public Use
  Company Number: 10267

PATIENT
  Age: 69 Year
  Sex: Male

DRUGS (4)
  1. METHOTREXATE [Suspect]
     Indication: RHEUMATOID ARTHRITIS
     Dosage: 7.5 MG WEEKLY, SC
     Route: 058
     Dates: start: 20020101
  2. ETANERCEPT [Suspect]
     Indication: RHEUMATOID ARTHRITIS
     Dosage: 25 MG  2/WK, SC
     Route: 058
     Dates: start: 20030402, end: 20030422
  3. PREDNISOLONE [Concomitant]
  4. CELECOXIB [Concomitant]

REACTIONS (2)
  - ERYSIPELAS [None]
  - SEPTIC ARTHRITIS STAPHYLOCOCCAL [None]
